FAERS Safety Report 9856543 (Version 2)
Quarter: 2014Q4

REPORT INFORMATION
  Report Type: Spontaneous
  Country: US (occurrence: US)
  Receive Date: 20140130
  Receipt Date: 20141002
  Transmission Date: 20150529
  Serious: No
  Sender: FDA-Public Use
  Company Number: US-009507513-1401USA014118

PATIENT
  Sex: Female
  Weight: 50.34 kg

DRUGS (1)
  1. NUVARING [Suspect]
     Active Substance: ETHINYL ESTRADIOL\ETONOGESTREL
     Indication: CONDITION AGGRAVATED
     Dosage: UNK
     Route: 067
     Dates: start: 20070928

REACTIONS (7)
  - Deep vein thrombosis [Unknown]
  - Inappropriate schedule of drug administration [Unknown]
  - SLE arthritis [Unknown]
  - Sciatica [Unknown]
  - Off label use [Unknown]
  - Adverse drug reaction [Unknown]
  - Hypertension [Unknown]

NARRATIVE: CASE EVENT DATE: 20070928
